FAERS Safety Report 23510754 (Version 1)
Quarter: 2024Q1

REPORT INFORMATION
  Report Type: Spontaneous
  Country: US (occurrence: US)
  Receive Date: 20240212
  Receipt Date: 20240212
  Transmission Date: 20240409
  Serious: No
  Sender: FDA-Public Use
  Company Number: US-SA-SAC20240202000212

PATIENT
  Age: 61 Year
  Sex: Male
  Weight: 87.5 kg

DRUGS (1)
  1. DUPIXENT [Suspect]
     Active Substance: DUPILUMAB
     Indication: Nasal polyps
     Dosage: 300 MG, QOW
     Route: 058
     Dates: start: 202001

REACTIONS (5)
  - Sinus disorder [Unknown]
  - Aphthous ulcer [Unknown]
  - COVID-19 [Unknown]
  - Cough [Unknown]
  - Dry eye [Unknown]
